FAERS Safety Report 17235405 (Version 1)
Quarter: 2020Q1

REPORT INFORMATION
  Report Type: Spontaneous
  Country: US (occurrence: US)
  Receive Date: 20200106
  Receipt Date: 20200106
  Transmission Date: 20200409
  Serious: No
  Sender: FDA-Public Use
  Company Number: US-APOTEX-2019AP026508

PATIENT
  Sex: Male

DRUGS (2)
  1. NICOTINE TRANSDERMAL SYSTEM [Suspect]
     Active Substance: NICOTINE
     Dosage: UNK (APPLIED 3 PATCHES)
     Route: 062
  2. NICOTINE TRANSDERMAL SYSTEM [Suspect]
     Active Substance: NICOTINE
     Indication: SMOKING CESSATION THERAPY
     Dosage: UNK (APPLIED 28 PATCHES)
     Route: 062

REACTIONS (4)
  - Product adhesion issue [Unknown]
  - Product substitution issue [Unknown]
  - Nicotine dependence [Unknown]
  - Drug ineffective [Unknown]
